FAERS Safety Report 11457746 (Version 2)
Quarter: 2015Q3

REPORT INFORMATION
  Report Type: Spontaneous
  Country: US (occurrence: US)
  Receive Date: 20150904
  Receipt Date: 20150923
  Transmission Date: 20151125
  Serious: No
  Sender: FDA-Public Use
  Company Number: ALCN2015US005556

PATIENT
  Age: 72 Year
  Sex: Female

DRUGS (2)
  1. PILOCARPINE HCL [Suspect]
     Active Substance: PILOCARPINE HYDROCHLORIDE
     Indication: INTRAOCULAR PRESSURE INCREASED
     Dosage: 1 GTT, QID
     Route: 047
     Dates: start: 20150814, end: 20150831
  2. PRED FORTE [Concomitant]
     Active Substance: PREDNISOLONE ACETATE
     Indication: PRODUCT USED FOR UNKNOWN INDICATION
     Dosage: 1 GTT, QID
     Route: 047
     Dates: start: 20150814

REACTIONS (4)
  - Vision blurred [Not Recovered/Not Resolved]
  - Dry mouth [Recovering/Resolving]
  - Condition aggravated [Recovering/Resolving]
  - Glare [Not Recovered/Not Resolved]

NARRATIVE: CASE EVENT DATE: 201508
